FAERS Safety Report 8226129-8 (Version None)
Quarter: 2012Q1

REPORT INFORMATION
  Report Type: 
  Country: None (occurrence: None)
  Receive Date: 20120319
  Receipt Date: 20120309
  Transmission Date: 20120608
  Serious: Yes (Hospitalization)
  Sender: FDA-Public Use
  Company Number: 2012AP000694

PATIENT
  Age: 67 Year
  Sex: Male

DRUGS (1)
  1. LAMOTRIGINE [Suspect]
     Indication: EPILEPSY

REACTIONS (2)
  - RENAL IMPAIRMENT [None]
  - TOXIC EPIDERMAL NECROLYSIS [None]
